FAERS Safety Report 8854573 (Version 1)
Quarter: 2012Q4

REPORT INFORMATION
  Report Type: 
  Country: US (occurrence: US)
  Receive Date: 20121023
  Receipt Date: 20121023
  Transmission Date: 20130627
  Serious: No
  Sender: FDA-Public Use
  Company Number: US-VERTEX PHARMACEUTICAL INC.-2012-023019

PATIENT
  Age: 48 Year
  Sex: Male

DRUGS (7)
  1. VX-950 [Suspect]
     Indication: HEPATITIS C
     Dosage: 750 mg, tid
     Route: 048
     Dates: start: 20121009
  2. RIBAPAK [Concomitant]
     Indication: HEPATITIS C
     Dosage: 1200 mg, qd
     Dates: start: 20121009
  3. PEGASYS [Concomitant]
     Indication: HEPATITIS C
     Dosage: 180 ?g, weekly
     Route: 058
     Dates: start: 20121009
  4. LOSARTAN + HIDROCLOROTIAZIDA [Concomitant]
     Dosage: 50-12.6mg
  5. HYDROCODONE/ACETAMINOPHEN          /00607101/ [Concomitant]
  6. VIIBRYD [Concomitant]
     Dosage: 40 mg, qd
  7. MULTIVITAMIN                       /00097801/ [Concomitant]

REACTIONS (5)
  - Arthralgia [Unknown]
  - Myalgia [Unknown]
  - Decreased appetite [Unknown]
  - Fatigue [Unknown]
  - Diarrhoea [Unknown]
